FAERS Safety Report 5236720-9 (Version None)
Quarter: 2007Q1

REPORT INFORMATION
  Report Type: 
  Country: None (occurrence: None)
  Receive Date: 20070209
  Receipt Date: 20070130
  Transmission Date: 20070707
  Serious: Yes (Other)
  Sender: FDA-Public Use
  Company Number: 2007SP001932

PATIENT
  Age: 44 Year
  Sex: Male

DRUGS (2)
  1. NASONEX [Suspect]
     Indication: RHINITIS ALLERGIC
     Dosage: NAS
     Route: 045
     Dates: start: 20060401, end: 20061201
  2. SOLUPRED [Concomitant]

REACTIONS (1)
  - OCULAR HYPERTENSION [None]
